FAERS Safety Report 17026710 (Version 2)
Quarter: 2019Q4

REPORT INFORMATION
  Report Type: Spontaneous
  Country: US (occurrence: US)
  Receive Date: 20191113
  Receipt Date: 20191127
  Transmission Date: 20200122
  Serious: No
  Sender: FDA-Public Use
  Company Number: US-TEVA-2019-US-1134543

PATIENT
  Age: 74 Year
  Sex: Male

DRUGS (2)
  1. CLONAZEPAM TEVA [Suspect]
     Active Substance: CLONAZEPAM
     Indication: PANIC ATTACK
     Route: 065
  2. CLONAZEPAM TEVA [Suspect]
     Active Substance: CLONAZEPAM
     Indication: DEPRESSION

REACTIONS (5)
  - Feeling abnormal [Unknown]
  - Mood altered [Unknown]
  - Tremor [Unknown]
  - Feeling jittery [Unknown]
  - Product substitution issue [Unknown]
